FAERS Safety Report 23147489 (Version 1)
Quarter: 2023Q4

REPORT INFORMATION
  Report Type: Spontaneous
  Country: IT (occurrence: IT)
  Receive Date: 20231106
  Receipt Date: 20231106
  Transmission Date: 20240110
  Serious: Yes (Other)
  Sender: FDA-Public Use
  Company Number: None

PATIENT
  Age: 74 Year
  Sex: Female

DRUGS (7)
  1. PACLITAXEL [Suspect]
     Active Substance: PACLITAXEL
     Indication: Metaplastic breast carcinoma
     Dosage: PACLITAXEL 80 MG (13.33 ML) IN 250 ML SODIUM CHLORIDE 0.9% BAG
     Dates: start: 20230922, end: 20230922
  2. OMEPRAZOLE [Suspect]
     Active Substance: OMEPRAZOLE
     Indication: Chemotherapy side effect prophylaxis
     Dosage: OMEPRAZOLE 40 MG IN SALINE SOLUTION 100 ML FOR INTRAVENOUS INFUSION
     Dates: start: 20230922, end: 20230922
  3. TRIMETON [Suspect]
     Active Substance: CHLORPHENIRAMINE MALEATE
     Indication: Chemotherapy side effect prophylaxis
     Dosage: CHLORPHENAMINE 10 MG IN SOL FIS 100 ML FOR INTRAVENOUS INFUSION
     Dates: start: 20220922, end: 20230922
  4. DEURSIL [Concomitant]
     Active Substance: URSODIOL
  5. CAPTOPRIL [Concomitant]
     Active Substance: CAPTOPRIL
  6. FLUIMUCIL [Concomitant]
     Active Substance: ACETYLCYSTEINE
  7. GAVISCON [Concomitant]
     Active Substance: ALUMINUM HYDROXIDE\MAGNESIUM CARBONATE

REACTIONS (4)
  - Spinal pain [Recovered/Resolved]
  - Loss of consciousness [Recovered/Resolved]
  - Feeling hot [Recovered/Resolved]
  - Headache [Recovered/Resolved]

NARRATIVE: CASE EVENT DATE: 20230922
